FAERS Safety Report 16894417 (Version 1)
Quarter: 2019Q4

REPORT INFORMATION
  Report Type: Spontaneous
  Country: US (occurrence: US)
  Receive Date: 20191008
  Receipt Date: 20191008
  Transmission Date: 20200122
  Serious: No
  Sender: FDA-Public Use
  Company Number: US-INDIVIOR US-INDV-114131-2018

PATIENT
  Age: 81 Year
  Sex: Female

DRUGS (2)
  1. SUBOXONE [Suspect]
     Active Substance: BUPRENORPHINE HYDROCHLORIDE\NALOXONE HYDROCHLORIDE
     Indication: PAIN
     Dosage: UNK
     Route: 060
  2. BUTRANS [Suspect]
     Active Substance: BUPRENORPHINE
     Indication: PRODUCT USED FOR UNKNOWN INDICATION
     Dosage: 15 MICROGRAMS THREE TIMES PER WEEK
     Route: 065

REACTIONS (7)
  - Tooth disorder [Unknown]
  - Back pain [Recovered/Resolved]
  - Scar [Not Recovered/Not Resolved]
  - Hypersensitivity [Recovered/Resolved]
  - Rash vesicular [Recovered/Resolved]
  - Off label use [Recovered/Resolved]
  - Oral mucosal blistering [Recovered/Resolved]
